FAERS Safety Report 26157339 (Version 1)
Quarter: 2025Q4

REPORT INFORMATION
  Report Type: Spontaneous
  Country: JP (occurrence: JP)
  Receive Date: 20251215
  Receipt Date: 20251215
  Transmission Date: 20260118
  Serious: Yes (Other)
  Sender: MYLAN
  Company Number: JP-VIATRISJAPAN-2025M1105503AA

PATIENT

DRUGS (8)
  1. CELECOXIB [Suspect]
     Active Substance: CELECOXIB
     Indication: Pain
     Dosage: UNK, PRN
     Route: 061
  2. CELECOXIB [Suspect]
     Active Substance: CELECOXIB
     Indication: Lumbar spinal stenosis
     Dosage: UNK, PRN
     Route: 048
  3. CELECOXIB [Suspect]
     Active Substance: CELECOXIB
     Dosage: UNK, PRN
     Route: 048
  4. CELECOXIB [Suspect]
     Active Substance: CELECOXIB
     Dosage: UNK, PRN
     Route: 061
  5. REBAMIPIDE [Suspect]
     Active Substance: REBAMIPIDE
     Indication: Product used for unknown indication
     Dosage: UNK, PRN
     Route: 061
  6. REBAMIPIDE [Suspect]
     Active Substance: REBAMIPIDE
     Dosage: UNK, PRN
     Route: 048
  7. REBAMIPIDE [Suspect]
     Active Substance: REBAMIPIDE
     Dosage: UNK, PRN
     Route: 048
  8. REBAMIPIDE [Suspect]
     Active Substance: REBAMIPIDE
     Dosage: UNK, PRN
     Route: 061

REACTIONS (3)
  - Gastritis erosive [Unknown]
  - Inappropriate schedule of product administration [Unknown]
  - Off label use [Unknown]

NARRATIVE: CASE EVENT DATE: 20251207
